FAERS Safety Report 7023677-3 (Version None)
Quarter: 2010Q3

REPORT INFORMATION
  Report Type: 
  Country: None (occurrence: None)
  Receive Date: 20100929
  Receipt Date: 20100929
  Transmission Date: 20110219
  Serious: Yes (Other)
  Sender: FDA-Public Use
  Company Number: None

PATIENT
  Age: 71 Year
  Sex: Male
  Weight: 97 kg

DRUGS (2)
  1. ETOPOSIDE [Suspect]
     Dosage: 219 MG EVERY DAY IV
     Route: 042
     Dates: start: 20100803, end: 20100803
  2. CARBOPLATIN [Suspect]
     Dosage: 846 ONCE IV
     Route: 042
     Dates: start: 20100803, end: 20100803

REACTIONS (1)
  - INFUSION SITE PAIN [None]
